FAERS Safety Report 15762852 (Version 1)
Quarter: 2018Q4

REPORT INFORMATION
  Report Type: Spontaneous
  Country: US (occurrence: US)
  Receive Date: 20181226
  Receipt Date: 20181226
  Transmission Date: 20190205
  Serious: Yes (Hospitalization, Other)
  Sender: FDA-Public Use
  Company Number: US-PFIZER INC-2018526589

PATIENT
  Age: 67 Year
  Sex: Female

DRUGS (5)
  1. PREDNISONE. [Concomitant]
     Active Substance: PREDNISONE
     Indication: GRAFT VERSUS HOST DISEASE IN GASTROINTESTINAL TRACT
     Dosage: 5 MG, DAILY
  2. TACROLIMUS. [Concomitant]
     Active Substance: TACROLIMUS
     Indication: GRAFT VERSUS HOST DISEASE IN GASTROINTESTINAL TRACT
     Dosage: 0.5 MG, DAILY
  3. METRONIDAZOLE. [Suspect]
     Active Substance: METRONIDAZOLE
     Indication: INFECTIOUS COLITIS
     Dosage: UNK
  4. CEPHALEXINE [Suspect]
     Active Substance: CEPHALEXIN
     Indication: INFECTIOUS COLITIS
     Dosage: UNK
  5. DOXYCYCLINE HYCLATE. [Suspect]
     Active Substance: DOXYCYCLINE HYCLATE
     Indication: INFECTIOUS COLITIS
     Dosage: UNK

REACTIONS (1)
  - Haemolytic uraemic syndrome [Recovering/Resolving]
